FAERS Safety Report 7215907-X (Version None)
Quarter: 2011Q1

REPORT INFORMATION
  Report Type: 
  Country: None (occurrence: None)
  Receive Date: 20110107
  Receipt Date: 20101224
  Transmission Date: 20110831
  Serious: Yes (Other)
  Sender: FDA-Public Use
  Company Number: JP-PFIZER INC-2009161080

PATIENT
  Age: 72 Year
  Sex: Male
  Weight: 57 kg

DRUGS (15)
  1. SOLDEM 1 [Concomitant]
     Dosage: 2X/DAY
     Route: 042
     Dates: end: 20081027
  2. TRANSAMIN [Concomitant]
     Dosage: 50 MG, 2X/DAY
     Route: 042
     Dates: end: 20081027
  3. TAMSULOSIN HCL [Concomitant]
     Dosage: 0.2 MG, 1X/DAY
     Route: 048
  4. CALTAN [Concomitant]
     Dosage: 500 MG, 3X/DAY
     Route: 048
  5. TAGAMET [Concomitant]
     Dosage: 200 MG, 2X/DAY
     Route: 048
     Dates: end: 20081105
  6. ADONA [Concomitant]
     Dosage: 25 MG, 2X/DAY
     Route: 042
     Dates: end: 20081027
  7. BROTIZOLAM [Concomitant]
     Dosage: 0.25 MG, 1X/DAY
     Route: 048
     Dates: end: 20081111
  8. NOVOLIN R [Concomitant]
     Indication: DIABETES MELLITUS
     Dosage: 2X DAY
     Route: 058
     Dates: start: 20081024, end: 20081027
  9. PRIMPERAN TAB [Concomitant]
     Indication: PROPHYLAXIS OF NAUSEA AND VOMITING
     Dosage: 5 MG, 2X/DAY
     Route: 042
     Dates: end: 20081027
  10. THYRADIN S [Concomitant]
     Dosage: 100 UG, 1X/DAY
     Route: 048
  11. SUNITINIB MALATE [Suspect]
     Indication: RENAL CELL CARCINOMA
     Dosage: 50 MG, 1X/DAY
     Route: 048
     Dates: start: 20081024, end: 20081027
  12. SUNITINIB MALATE [Suspect]
     Dosage: 25 MG, 1X/DAY
     Route: 048
     Dates: start: 20081105
  13. GLUCOSE [Concomitant]
     Dosage: 50 ML, 1X/DAY
     Route: 042
     Dates: end: 20081027
  14. CEFOTIAM HYDROCHLORIDE [Concomitant]
     Dosage: 1 G, 1X/DAY
     Route: 042
     Dates: end: 20081027
  15. ONE-ALPHA [Concomitant]
     Dosage: 0.25 UG, 1X/DAY
     Route: 048

REACTIONS (2)
  - THROMBOCYTOPENIA [None]
  - MYOCLONUS [None]
